FAERS Safety Report 9025944 (Version 2)
Quarter: 2013Q1

REPORT INFORMATION
  Report Type: Spontaneous
  Country: US (occurrence: None)
  Receive Date: 20130104
  Receipt Date: 20130111
  Transmission Date: 20140127
  Serious: Yes (Death, Hospitalization)
  Sender: FDA-Public Use
  Company Number: 2012-1000

PATIENT
  Age: 60 Year
  Sex: Female

DRUGS (2)
  1. KYPROLIS [Suspect]
     Indication: PLASMA CELL MYELOMA
     Route: 042
     Dates: start: 2012, end: 20120904
  2. ZOMETA [Concomitant]

REACTIONS (6)
  - Tendonitis [None]
  - Agitation [None]
  - Confusional state [None]
  - Hypercalcaemia [None]
  - Emotional disorder [None]
  - Plasma cell myeloma [None]
